FAERS Safety Report 23961543 (Version 2)
Quarter: 2024Q2

REPORT INFORMATION
  Report Type: Spontaneous
  Country: US (occurrence: US)
  Receive Date: 20240611
  Receipt Date: 20240624
  Transmission Date: 20240716
  Serious: No
  Sender: FDA-Public Use
  Company Number: US-JNJFOC-20240566833

PATIENT
  Age: 39 Year
  Sex: Male

DRUGS (1)
  1. MENS ROGAINE EXTRA STRENGTH [Suspect]
     Active Substance: MINOXIDIL
     Indication: Alopecia
     Dosage: 1 ML 2 TIMES A DAY
     Route: 061
     Dates: start: 20230828

REACTIONS (2)
  - Alopecia [Recovering/Resolving]
  - Application site pruritus [Recovered/Resolved]

NARRATIVE: CASE EVENT DATE: 20240401
